FAERS Safety Report 9501979 (Version 1)
Quarter: 2013Q3

REPORT INFORMATION
  Report Type: Report from Study
  Country: US (occurrence: US)
  Receive Date: 20130905
  Receipt Date: 20130905
  Transmission Date: 20140515
  Serious: Yes (Hospitalization)
  Sender: FDA-Public Use
  Company Number: US-US-EMD SERONO, INC.-7234466

PATIENT
  Age: 52 Year
  Sex: Male

DRUGS (2)
  1. REBIF [Suspect]
     Indication: MULTIPLE SCLEROSIS
     Dates: start: 20111230, end: 201201
  2. REBIF [Suspect]
     Dates: start: 201202

REACTIONS (3)
  - Contrast media reaction [Not Recovered/Not Resolved]
  - Multiple sclerosis relapse [Unknown]
  - Spinal vessel congenital anomaly [Unknown]
